FAERS Safety Report 20062674 (Version 1)
Quarter: 2021Q4

REPORT INFORMATION
  Report Type: Spontaneous
  Country: BR (occurrence: BR)
  Receive Date: 20211112
  Receipt Date: 20211112
  Transmission Date: 20220303
  Serious: Yes (Hospitalization, Other)
  Sender: FDA-Public Use
  Company Number: None

PATIENT
  Age: 86 Year
  Sex: Female
  Weight: 59.45 kg

DRUGS (2)
  1. KEYTRUDA [Suspect]
     Active Substance: PEMBROLIZUMAB
     Indication: Adenocarcinoma
     Dosage: 200 MILLIGRAMS, ONCE MONTLY
     Route: 042
     Dates: start: 20200925, end: 20201207
  2. MOXIFLOXACIN HYDROCHLORIDE [Concomitant]
     Active Substance: MOXIFLOXACIN HYDROCHLORIDE
     Indication: Adenocarcinoma
     Dosage: 200 MILLIGRAM CYCLE 2
     Dates: start: 20201015, end: 20201015

REACTIONS (10)
  - Delirium [Unknown]
  - Cyanosis [Recovered/Resolved]
  - Oxygen saturation abnormal [Recovered/Resolved]
  - Tachycardia [Recovered/Resolved]
  - Hyperaemia [Recovered/Resolved]
  - Bronchospasm [Recovered/Resolved]
  - Dehydration [Unknown]
  - Hyponatraemia [Unknown]
  - Dyspnoea [Recovered/Resolved]
  - Tachypnoea [Recovered/Resolved]

NARRATIVE: CASE EVENT DATE: 20201015
